FAERS Safety Report 6139345-6 (Version None)
Quarter: 2009Q2

REPORT INFORMATION
  Report Type: 
  Country: None (occurrence: None)
  Receive Date: 20090401
  Receipt Date: 20090323
  Transmission Date: 20091009
  Serious: Yes (Death)
  Sender: FDA-Public Use
  Company Number: IT-ROCHE-623204

PATIENT
  Sex: Female
  Weight: 71 kg

DRUGS (1)
  1. CAPECITABINE [Suspect]
     Indication: DRUG USE FOR UNKNOWN INDICATION
     Dosage: FREQUENCY: DAILY, PERMANENTLY DISCONTINUED.
     Route: 065
     Dates: start: 20060906

REACTIONS (1)
  - PULMONARY EMBOLISM [None]
